FAERS Safety Report 8379917-1 (Version None)
Quarter: 2012Q1

REPORT INFORMATION
  Report Type: 
  Country: None (occurrence: None)
  Receive Date: 20120323
  Receipt Date: 20110414
  Transmission Date: 20120608
  Serious: Yes (Hospitalization)
  Sender: FDA-Public Use
  Company Number: 163-21880-11041974

PATIENT
  Age: 53 Year
  Sex: Female
  Weight: 68.8 kg

DRUGS (5)
  1. REVLIMID [Suspect]
     Indication: MULTIPLE MYELOMA
     Dosage: 25;10 MG, DAILY X 21 OF 28 DAYS, PO
     Route: 048
     Dates: start: 20110401
  2. REVLIMID [Suspect]
     Indication: MULTIPLE MYELOMA
     Dosage: 25;10 MG, DAILY X 21 OF 28 DAYS, PO
     Route: 048
     Dates: start: 20110328, end: 20110414
  3. REVLIMID [Suspect]
  4. DECADRON [Concomitant]
  5. NEURONTIN [Concomitant]

REACTIONS (3)
  - DEHYDRATION [None]
  - BLOOD CREATININE INCREASED [None]
  - GLOMERULAR FILTRATION RATE DECREASED [None]
